FAERS Safety Report 12680953 (Version 2)
Quarter: 2016Q3

REPORT INFORMATION
  Report Type: Spontaneous
  Country: ES (occurrence: ES)
  Receive Date: 20160824
  Receipt Date: 20160916
  Transmission Date: 20161109
  Serious: Yes (Other)
  Sender: FDA-Public Use
  Company Number: ES-TEVA-684715ISR

PATIENT
  Age: 35 Year
  Sex: Female

DRUGS (1)
  1. DOCETAXEL TEVA [Suspect]
     Active Substance: DOCETAXEL
     Dates: start: 20160810, end: 20160810

REACTIONS (3)
  - Abdominal pain [Recovered/Resolved]
  - Dystonia [Recovered/Resolved]
  - Feeling hot [Recovered/Resolved]

NARRATIVE: CASE EVENT DATE: 20160810
